FAERS Safety Report 21908208 (Version 9)
Quarter: 2024Q3

REPORT INFORMATION
  Report Type: Spontaneous
  Country: CA (occurrence: CA)
  Receive Date: 20230125
  Receipt Date: 20240717
  Transmission Date: 20241017
  Serious: Yes (Other)
  Sender: PFIZER
  Company Number: CA-PFIZER INC-202201346099

PATIENT
  Age: 66 Year
  Sex: Male

DRUGS (1)
  1. ABRILADA [Suspect]
     Active Substance: ADALIMUMAB-AFZB
     Indication: Psoriatic arthropathy
     Dosage: 40 MG, EVERY 2 WEEKS
     Route: 058
     Dates: start: 20221019

REACTIONS (12)
  - C-reactive protein increased [Not Recovered/Not Resolved]
  - Haemorrhage [Unknown]
  - Condition aggravated [Not Recovered/Not Resolved]
  - Red blood cell sedimentation rate increased [Recovering/Resolving]
  - Synovitis [Unknown]
  - Nausea [Unknown]
  - Muscular weakness [Unknown]
  - Myalgia [Unknown]
  - Fatigue [Recovering/Resolving]
  - Thyroid hormones decreased [Unknown]
  - Nervous system disorder [Unknown]
  - Hypoaesthesia [Unknown]

NARRATIVE: CASE EVENT DATE: 20220101
